FAERS Safety Report 9596805 (Version 4)
Quarter: 2014Q3

REPORT INFORMATION
  Report Type: Spontaneous
  Country: US (occurrence: US)
  Receive Date: 20131004
  Receipt Date: 20140813
  Transmission Date: 20150326
  Serious: Yes (Death, Hospitalization, Other)
  Sender: FDA-Public Use
  Company Number: US-B.I. PHARMACEUTICALS,INC./RIDGEFIELD-2013-BI-30866BP

PATIENT
  Age: 72 Year
  Sex: Male
  Weight: 106.59 kg

DRUGS (16)
  1. DHEA [Concomitant]
     Active Substance: DEHYDROEPIANDROSTERONE-3-SULFATE SODIUM
     Route: 065
     Dates: start: 200111, end: 20111124
  2. FOLIC ACID. [Concomitant]
     Active Substance: FOLIC ACID
     Route: 065
  3. VITAMIN C [Concomitant]
     Active Substance: ASCORBIC ACID
     Route: 065
  4. PRADAXA [Suspect]
     Active Substance: DABIGATRAN ETEXILATE MESYLATE
     Indication: ATRIAL FIBRILLATION
     Route: 065
     Dates: start: 201106, end: 20111124
  5. ANASTROZOLE. [Concomitant]
     Active Substance: ANASTROZOLE
     Route: 065
     Dates: start: 20111101, end: 20111124
  6. TESTERONE [Concomitant]
     Active Substance: TESTOSTERONE
     Dosage: DOSE PER APPLICATION :20MG,30ML
     Route: 061
     Dates: start: 200111, end: 20111124
  7. VITAMIN B6/B12 [Concomitant]
     Route: 065
  8. INDAPAMIDE. [Concomitant]
     Active Substance: INDAPAMIDE
     Route: 065
     Dates: start: 2004
  9. COENZYME Q10 [Concomitant]
     Active Substance: UBIDECARENONE
     Route: 065
  10. CRESTOR [Concomitant]
     Active Substance: ROSUVASTATIN CALCIUM
     Route: 065
     Dates: start: 2004
  11. ACRON [Concomitant]
     Route: 065
     Dates: start: 2004
  12. SOLATOL [Concomitant]
     Route: 065
     Dates: start: 201106, end: 201111
  13. FISH OIL/COD LIVER OIL [Concomitant]
     Route: 065
  14. LIPORIC ACID [Concomitant]
     Route: 065
  15. CAINITINE [Concomitant]
     Route: 065
  16. MULTIGENERIC MULTIVITAMIN [Concomitant]
     Route: 065

REACTIONS (2)
  - International normalised ratio increased [Unknown]
  - Haemorrhage intracranial [Fatal]

NARRATIVE: CASE EVENT DATE: 201111
